FAERS Safety Report 4588314-6 (Version None)
Quarter: 2005Q1

REPORT INFORMATION
  Report Type: 
  Country: None (occurrence: None)
  Receive Date: 20050222
  Receipt Date: 20041027
  Transmission Date: 20050727
  Serious: Yes (Other)
  Sender: FDA-Public Use
  Company Number: 200510158JP

PATIENT
  Age: 51 Year
  Sex: Female
  Weight: 77 kg

DRUGS (17)
  1. ARAVA [Suspect]
     Indication: RHEUMATOID ARTHRITIS
     Route: 048
     Dates: start: 20031002, end: 20031004
  2. IMURAN [Concomitant]
     Indication: RHEUMATOID ARTHRITIS
     Route: 048
     Dates: start: 20030806, end: 20031001
  3. PREDONINE [Concomitant]
     Indication: RHEUMATOID ARTHRITIS
     Route: 048
     Dates: start: 20030701
  4. NORVASC [Concomitant]
     Indication: HYPERTENSION
     Route: 048
     Dates: start: 20030512
  5. LOXONIN [Concomitant]
     Indication: RHEUMATOID ARTHRITIS
     Route: 048
     Dates: start: 19990106, end: 20031112
  6. VOLTAREN [Concomitant]
     Indication: RHEUMATOID ARTHRITIS
     Route: 054
     Dates: start: 19990802
  7. MEVALOTIN [Concomitant]
     Indication: HYPERLIPIDAEMIA
     Route: 048
     Dates: start: 19990106
  8. ALFAROL [Concomitant]
     Indication: OSTEOPOROSIS
     Route: 048
     Dates: start: 20000301
  9. MUCOSTA [Concomitant]
     Route: 048
     Dates: start: 19990106
  10. NOVOLIN R [Concomitant]
     Indication: DIABETES MELLITUS
     Route: 058
     Dates: start: 20030627, end: 20031224
  11. ACTOS [Concomitant]
     Indication: DIABETES MELLITUS
     Route: 048
     Dates: start: 20030626, end: 20040317
  12. PHENOBAL [Concomitant]
     Indication: EPILEPSY
     Route: 048
     Dates: start: 19990101
  13. RIVOTRIL [Concomitant]
     Indication: EPILEPSY
     Route: 048
     Dates: start: 19990101
  14. CELTECT [Concomitant]
     Indication: PRURITUS
     Route: 048
     Dates: start: 19990101
  15. XALATAN [Concomitant]
     Indication: GLAUCOMA
     Route: 031
     Dates: start: 20020626
  16. METHOTREXATE [Concomitant]
     Dosage: DOSE: 5MG/WEEK
     Route: 048
     Dates: start: 19960101, end: 20011025
  17. MOVER [Concomitant]
     Indication: RHEUMATOID ARTHRITIS
     Route: 048
     Dates: start: 20040317, end: 20040526

REACTIONS (11)
  - ALANINE AMINOTRANSFERASE INCREASED [None]
  - BLOOD ALKALINE PHOSPHATASE INCREASED [None]
  - BLOOD FIBRINOGEN INCREASED [None]
  - BLOOD PRESSURE INCREASED [None]
  - BOWEL SOUNDS ABNORMAL [None]
  - DIARRHOEA [None]
  - GAMMA-GLUTAMYLTRANSFERASE INCREASED [None]
  - HYPERHIDROSIS [None]
  - LYMPHOCYTE PERCENTAGE DECREASED [None]
  - NEUTROPHIL PERCENTAGE INCREASED [None]
  - PROTEINURIA [None]
